FAERS Safety Report 23069712 (Version 4)
Quarter: 2025Q2

REPORT INFORMATION
  Report Type: Spontaneous
  Country: TR (occurrence: TR)
  Receive Date: 20231016
  Receipt Date: 20250402
  Transmission Date: 20250717
  Serious: Yes (Hospitalization)
  Sender: ABBVIE
  Company Number: TR-ABBVIE-5451153

PATIENT
  Age: 74 Year
  Sex: Female

DRUGS (4)
  1. ADALIMUMAB [Suspect]
     Active Substance: ADALIMUMAB
     Indication: Psoriasis
     Route: 058
  2. SKYRIZI [Suspect]
     Active Substance: RISANKIZUMAB-RZAA
     Indication: Psoriasis
     Route: 058
  3. SKYRIZI [Suspect]
     Active Substance: RISANKIZUMAB-RZAA
     Route: 058
  4. ACITRETIN [Suspect]
     Active Substance: ACITRETIN
     Indication: Psoriasis
     Route: 065

REACTIONS (2)
  - Cerebrovascular accident [Recovered/Resolved]
  - Therapeutic product effect incomplete [Unknown]
